FAERS Safety Report 19885738 (Version 1)
Quarter: 2021Q3

REPORT INFORMATION
  Report Type: Spontaneous
  Country: RO (occurrence: RO)
  Receive Date: 20210927
  Receipt Date: 20210927
  Transmission Date: 20211014
  Serious: Yes (Other)
  Sender: FDA-Public Use
  Company Number: RO-ASTELLAS-2021US035613

PATIENT
  Sex: Male

DRUGS (6)
  1. GOSERELIN [Concomitant]
     Active Substance: GOSERELIN
     Indication: PRODUCT USED FOR UNKNOWN INDICATION
     Dosage: UNK UNK, UNKNOWN FREQ.
     Route: 065
     Dates: start: 201108, end: 201206
  2. XTANDI [Suspect]
     Active Substance: ENZALUTAMIDE
     Indication: PROSTATE CANCER
     Route: 065
     Dates: start: 201704
  3. ZOLEDRONIC ACID. [Concomitant]
     Active Substance: ZOLEDRONIC ACID
     Indication: PRODUCT USED FOR UNKNOWN INDICATION
     Dosage: 4 MG, EVERY 3 MONTHS
     Route: 065
  4. GOSERELIN [Concomitant]
     Active Substance: GOSERELIN
     Dosage: UNK UNK, UNKNOWN FREQ.
     Route: 065
  5. GOSERELIN [Concomitant]
     Active Substance: GOSERELIN
     Dosage: UNK UNK, UNKNOWN FREQ.
     Route: 065
     Dates: start: 201207, end: 201302
  6. ZOLEDRONIC ACID. [Concomitant]
     Active Substance: ZOLEDRONIC ACID
     Route: 065

REACTIONS (4)
  - Motor dysfunction [Unknown]
  - Gait disturbance [Unknown]
  - Dysarthria [Unknown]
  - Lacunar stroke [Unknown]

NARRATIVE: CASE EVENT DATE: 2020
